FAERS Safety Report 17495154 (Version 3)
Quarter: 2020Q2

REPORT INFORMATION
  Report Type: Spontaneous
  Country: US (occurrence: US)
  Receive Date: 20200303
  Receipt Date: 20200601
  Transmission Date: 20200713
  Serious: Yes (Hospitalization, Disabling)
  Sender: FDA-Public Use
  Company Number: US-JNJFOC-20200239432

PATIENT
  Age: 70 Year
  Sex: Male

DRUGS (2)
  1. INVOKANA [Suspect]
     Active Substance: CANAGLIFLOZIN
     Route: 048
  2. INVOKANA [Suspect]
     Active Substance: CANAGLIFLOZIN
     Indication: TYPE 2 DIABETES MELLITUS
     Route: 048
     Dates: end: 20140221

REACTIONS (9)
  - Gangrene [Unknown]
  - Leg amputation [Unknown]
  - Sepsis [Unknown]
  - Diabetic foot [Unknown]
  - Cellulitis [Unknown]
  - Osteomyelitis acute [Unknown]
  - Postoperative wound infection [Unknown]
  - Acute kidney injury [Unknown]
  - Therapeutic product effect decreased [Unknown]

NARRATIVE: CASE EVENT DATE: 20140221
